FAERS Safety Report 16090117 (Version 2)
Quarter: 2021Q1

REPORT INFORMATION
  Report Type: Spontaneous
  Country: US (occurrence: US)
  Receive Date: 20190319
  Receipt Date: 20210331
  Transmission Date: 20210419
  Serious: No
  Sender: FDA-Public Use
  Company Number: US-SA-2019SA072216

PATIENT
  Age: 57 Year
  Sex: Female
  Weight: 63.5 kg

DRUGS (8)
  1. DUPIXENT [Suspect]
     Active Substance: DUPILUMAB
     Indication: ASTHMA
  2. XOLAIR [Concomitant]
     Active Substance: OMALIZUMAB
     Dosage: UNK UNK, UNK
     Route: 065
  3. RANITIDINE HCL [Concomitant]
     Active Substance: RANITIDINE HYDROCHLORIDE
     Dosage: 150 MG
     Route: 065
  4. LORATADINE D [Concomitant]
     Active Substance: LORATADINE\PSEUDOEPHEDRINE SULFATE
     Dosage: UNK UNK, QD
     Route: 065
  5. LIPITOR [Concomitant]
     Active Substance: ATORVASTATIN CALCIUM
     Dosage: UNK
     Route: 065
  6. DUPIXENT [Suspect]
     Active Substance: DUPILUMAB
     Indication: DERMATITIS ATOPIC
     Dosage: 300 MG, QOW
     Route: 065
  7. PREDNISONE [PREDNISONE ACETATE] [Suspect]
     Active Substance: PREDNISONE ACETATE
     Dosage: UNK UNK, UNK
     Route: 065
  8. ZYRTEC?D [Concomitant]
     Active Substance: CETIRIZINE HYDROCHLORIDE\PSEUDOEPHEDRINE HYDROCHLORIDE
     Dosage: UNK
     Route: 065

REACTIONS (7)
  - Arthritis [Unknown]
  - Hordeolum [Unknown]
  - Erythema of eyelid [Unknown]
  - Eyelid irritation [Unknown]
  - Eye pain [Unknown]
  - Dry eye [Unknown]
  - Flushing [Unknown]

NARRATIVE: CASE EVENT DATE: 20190226
